FAERS Safety Report 24694889 (Version 1)
Quarter: 2024Q4

REPORT INFORMATION
  Report Type: Spontaneous
  Country: US (occurrence: None)
  Receive Date: 20241203
  Receipt Date: 20241203
  Transmission Date: 20250114
  Serious: No
  Sender: Public
  Company Number: None

PATIENT
  Age: 36 Year
  Sex: Male

DRUGS (1)
  1. BUPRENORPHINE [Suspect]
     Active Substance: BUPRENORPHINE
     Indication: Drug dependence

REACTIONS (5)
  - Anxiety [None]
  - Withdrawal syndrome [None]
  - Chills [None]
  - Discomfort [None]
  - Productive cough [None]

NARRATIVE: CASE EVENT DATE: 20241113
